FAERS Safety Report 8263184-3 (Version None)
Quarter: 2012Q1

REPORT INFORMATION
  Report Type: 
  Country: None (occurrence: None)
  Receive Date: 20120327
  Receipt Date: 20110421
  Transmission Date: 20120608
  Serious: Yes (Other)
  Sender: FDA-Public Use
  Company Number: PHHY2011US34180

PATIENT
  Age: 32 Year
  Sex: Male

DRUGS (4)
  1. ALLOPURINOL [Concomitant]
  2. GLEEVEC [Suspect]
     Indication: CHRONIC MYELOID LEUKAEMIA
     Dosage: 400 MG DAILY, ORAL; 300 MG, DAILY, ORAL
     Route: 048
     Dates: start: 20110301
  3. PREDNISONE TAB [Concomitant]
  4. HYDROXYUREA [Concomitant]

REACTIONS (1)
  - THROMBOCYTOPENIA [None]
